FAERS Safety Report 7990695-8 (Version None)
Quarter: 2011Q4

REPORT INFORMATION
  Report Type: 
  Country: None (occurrence: None)
  Receive Date: 20111219
  Receipt Date: 20111213
  Transmission Date: 20120403
  Serious: Yes (Hospitalization)
  Sender: FDA-Public Use
  Company Number: DK-PFIZER INC-2011302926

PATIENT
  Age: 76 Year
  Sex: Female
  Weight: 56 kg

DRUGS (1)
  1. SUNITINIB MALATE [Suspect]
     Indication: METASTATIC RENAL CELL CARCINOMA
     Dosage: 50 MG, 1X/DAY IN 28 DAYS THEN PAUSE IN 35 DAYS
     Dates: start: 20100126, end: 20100423

REACTIONS (3)
  - DEHYDRATION [None]
  - NAUSEA [None]
  - VOMITING [None]
